FAERS Safety Report 7084709-X (Version None)
Quarter: 2010Q4

REPORT INFORMATION
  Report Type: 
  Country: None (occurrence: None)
  Receive Date: 20101104
  Receipt Date: 20101102
  Transmission Date: 20110411
  Serious: Yes (Life-Threatening, Hospitalization)
  Sender: FDA-Public Use
  Company Number: CZ-AMGEN-CZECT2010002623

PATIENT
  Sex: Male

DRUGS (1)
  1. PEGFILGRASTIM [Suspect]
     Indication: COLORECTAL CANCER METASTATIC

REACTIONS (1)
  - ANAPHYLACTIC SHOCK [None]
